FAERS Safety Report 7962652-9 (Version None)
Quarter: 2011Q4

REPORT INFORMATION
  Report Type: 
  Country: None (occurrence: None)
  Receive Date: 20111207
  Receipt Date: 20111129
  Transmission Date: 20120403
  Serious: Yes (Hospitalization)
  Sender: FDA-Public Use
  Company Number: US-B.I. PHARMACEUTICALS,INC./RIDGEFIELD-2011-BP-25418BP

PATIENT
  Age: 71 Year
  Sex: Male

DRUGS (8)
  1. TRILIPIX [Concomitant]
     Dosage: 135 G
  2. BENICAR [Concomitant]
     Dosage: 20 G
  3. JANUVIA [Concomitant]
     Dosage: 100 G
  4. DIGOXIN [Concomitant]
     Dosage: 25 MG
  5. LUNESTA [Concomitant]
     Dosage: 32 G
  6. VERAPAMIL [Concomitant]
     Dosage: 180 G
  7. PRADAXA [Suspect]
     Indication: ATRIAL FIBRILLATION
     Dates: start: 20110701
  8. LIPITOR [Concomitant]
     Dosage: 10 G

REACTIONS (1)
  - SUBDURAL HAEMATOMA [None]
